FAERS Safety Report 7458342-1 (Version None)
Quarter: 2011Q2

REPORT INFORMATION
  Report Type: 
  Country: None (occurrence: None)
  Receive Date: 20110504
  Receipt Date: 20110307
  Transmission Date: 20111010
  Serious: Yes (Hospitalization)
  Sender: FDA-Public Use
  Company Number: NL-AMGEN-NLDSP2011004097

PATIENT
  Sex: Female

DRUGS (2)
  1. PRIMPERAN                          /00041901/ [Concomitant]
     Route: 042
  2. NEULASTA [Suspect]
     Indication: PRODUCT USED FOR UNKNOWN INDICATION

REACTIONS (6)
  - VOMITING [None]
  - BACK PAIN [None]
  - INFECTION [None]
  - BLOOD PRESSURE DECREASED [None]
  - PYREXIA [None]
  - INFLUENZA LIKE ILLNESS [None]
